FAERS Safety Report 9989036 (Version 2)
Quarter: 2014Q1

REPORT INFORMATION
  Report Type: Report from Study
  Country: PR (occurrence: PR)
  Receive Date: 20140310
  Receipt Date: 20140310
  Transmission Date: 20141002
  Serious: No
  Sender: FDA-Public Use
  Company Number: PR-ABBVIE-12P-131-0913932-00

PATIENT
  Age: 43 Year
  Sex: Female
  Weight: 81.72 kg

DRUGS (11)
  1. HUMIRA [Suspect]
     Indication: PSORIASIS
     Route: 058
     Dates: start: 2011, end: 201206
  2. HUMIRA [Suspect]
     Dates: start: 201207
  3. SIMVASTATIN [Concomitant]
     Indication: BLOOD CHOLESTEROL
     Route: 048
  4. CAPTOTRIL [Concomitant]
     Indication: HYPERTENSION
     Route: 048
  5. GLIPIZIDE [Concomitant]
     Indication: DIABETES MELLITUS
     Route: 048
  6. CLONAZEPAM [Concomitant]
     Indication: DEPRESSION
     Route: 048
  7. TEMAZEPAM [Concomitant]
     Indication: DEPRESSION
     Route: 048
  8. CYMBALTA [Concomitant]
     Indication: DEPRESSION
     Route: 048
  9. NEURONTIN [Concomitant]
     Indication: PAIN
     Route: 048
  10. PROVENTIL [Concomitant]
     Indication: ASTHMA
     Route: 055
  11. ALBUTEROL [Concomitant]
     Indication: ASTHMA
     Route: 055

REACTIONS (3)
  - Asthma [Unknown]
  - Asthma [Unknown]
  - Asthma [Recovered/Resolved]
